FAERS Safety Report 17900329 (Version 5)
Quarter: 2023Q1

REPORT INFORMATION
  Report Type: Spontaneous
  Country: US (occurrence: US)
  Receive Date: 20200616
  Receipt Date: 20230315
  Transmission Date: 20230417
  Serious: No
  Sender: FDA-Public Use
  Company Number: US-PFIZER INC-2020232998

PATIENT
  Age: 67 Year
  Sex: Female
  Weight: 117.93 kg

DRUGS (1)
  1. IBRANCE [Suspect]
     Active Substance: PALBOCICLIB
     Indication: Breast cancer metastatic
     Dosage: 125 MG, CYCLIC (TAKE ONE DAILY FOR 21 AND OFF FOR 7 BY MOUTH)
     Route: 048
     Dates: start: 20200601

REACTIONS (4)
  - Pruritus [Recovered/Resolved]
  - Alopecia [Unknown]
  - Abdominal pain upper [Unknown]
  - Anxiety [Unknown]

NARRATIVE: CASE EVENT DATE: 20200601
